FAERS Safety Report 16615946 (Version 1)
Quarter: 2019Q3

REPORT INFORMATION
  Report Type: Report from Study
  Country: GB (occurrence: GB)
  Receive Date: 20190723
  Receipt Date: 20190723
  Transmission Date: 20191004
  Serious: Yes (Other)
  Sender: FDA-Public Use
  Company Number: GB-MYLANLABS-2019M1068370

PATIENT
  Age: 38 Year
  Sex: Female

DRUGS (23)
  1. DOCETAXEL. [Suspect]
     Active Substance: DOCETAXEL
     Dosage: 108 MILLIGRAM, Q3W
     Route: 042
     Dates: start: 20150925, end: 20151127
  2. VERAPAMIL [Concomitant]
     Active Substance: VERAPAMIL HYDROCHLORIDE
     Indication: VENTRICULAR EXTRASYSTOLES
     Dosage: UNK
     Route: 048
     Dates: start: 20160906
  3. TRASTUZUMAB. [Suspect]
     Active Substance: TRASTUZUMAB
     Indication: HER-2 POSITIVE BREAST CANCER
     Dosage: 525 MILLIGRAM, TOTAL(LOADING DOSE 8 MG/KG)
     Route: 042
     Dates: start: 20150721
  4. TRASTUZUMAB. [Suspect]
     Active Substance: TRASTUZUMAB
     Dosage: 400 MILLIGRAM, Q3W(MAINTAINANCE DOSE 6 MG/KG)
     Route: 042
     Dates: start: 20150814
  5. FILGRASTIM [Concomitant]
     Active Substance: FILGRASTIM
     Dosage: 300 MICROGRAM, QD
     Route: 058
     Dates: start: 20151025, end: 20151031
  6. PROCHLORPERAZINE. [Concomitant]
     Active Substance: PROCHLORPERAZINE
     Dosage: 15 MILLIGRAM, QD
     Route: 048
     Dates: start: 20160106, end: 20160113
  7. TAZOCIN [Concomitant]
     Active Substance: PIPERACILLIN SODIUM\TAZOBACTAM SODIUM
     Dosage: 18 GRAM, QD
     Route: 042
     Dates: start: 20151005, end: 20151008
  8. BISOPROLOL [Concomitant]
     Active Substance: BISOPROLOL
     Dosage: 1.25 MILLIGRAM, QD
     Route: 048
     Dates: start: 20160826, end: 20160906
  9. PERTUZUMAB. [Suspect]
     Active Substance: PERTUZUMAB
     Indication: HER-2 POSITIVE BREAST CANCER
     Dosage: 840 MILLIGRAM, TOTAL
     Route: 042
     Dates: start: 20150721
  10. PERTUZUMAB. [Suspect]
     Active Substance: PERTUZUMAB
     Dosage: 420 MILLIGRAM, Q3W(MAINTAINANCE DOSE)
     Route: 042
     Dates: start: 20150814
  11. FILGRASTIM [Concomitant]
     Active Substance: FILGRASTIM
     Dosage: 300 MICROGRAM, QD
     Route: 058
     Dates: start: 20151120, end: 20151120
  12. COD-LIVER OIL [Concomitant]
     Active Substance: COD LIVER OIL
     Dosage: UNK
     Route: 048
     Dates: start: 20171213
  13. PARACETAMOL [Concomitant]
     Active Substance: ACETAMINOPHEN
     Dosage: 4 GRAM, QD
     Route: 048
     Dates: start: 20151006, end: 20151008
  14. METRONIDAZOLE. [Concomitant]
     Active Substance: METRONIDAZOLE
     Dosage: 1200 MILLIGRAM, QD
     Route: 048
     Dates: start: 20151005
  15. VITAMIN C [Concomitant]
     Active Substance: ASCORBIC ACID
     Dosage: 1 DOSAGE FORM, QD
     Route: 048
     Dates: start: 20171213
  16. E45 [Concomitant]
     Active Substance: LANOLIN\LIGHT MINERAL OIL\PARAFFIN
     Dosage: 30 GRAM
     Route: 061
     Dates: start: 20151116
  17. TRIMETHOPRIM. [Concomitant]
     Active Substance: TRIMETHOPRIM
     Dosage: 400 MILLIGRAM, QD
     Route: 048
     Dates: start: 20151014, end: 20151202
  18. DOCETAXEL. [Suspect]
     Active Substance: DOCETAXEL
     Dosage: 86 MILLIGRAM, Q3W
     Route: 042
     Dates: start: 20150814, end: 20150904
  19. ZOLEDRONIC ACID [Concomitant]
     Active Substance: ZOLEDRONIC ACID
     Dosage: 4 MILLIGRAM, MONTHLY
     Route: 042
     Dates: start: 20151030
  20. CALCICHEW D3 FORTE [Concomitant]
     Active Substance: CALCIUM\CHOLECALCIFEROL
     Dosage: 2 DOSAGE FORM, QD
     Route: 048
     Dates: start: 20150720
  21. GENTAMICIN. [Concomitant]
     Active Substance: GENTAMICIN
     Dosage: 345 MILLIGRAM, QD
     Route: 042
     Dates: start: 20151005, end: 20151008
  22. DOCETAXEL. [Suspect]
     Active Substance: DOCETAXEL
     Indication: HER-2 POSITIVE BREAST CANCER
     Dosage: 108 MILLIGRAM, Q3W
     Route: 042
     Dates: start: 20150722, end: 20150722
  23. FILGRASTIM [Concomitant]
     Active Substance: FILGRASTIM
     Dosage: 300 MICROGRAM, QD
     Route: 058
     Dates: start: 20151005, end: 20151008

REACTIONS (4)
  - Breast pain [Recovered/Resolved]
  - Cough [Not Recovered/Not Resolved]
  - Ureteric obstruction [Recovered/Resolved]
  - Musculoskeletal chest pain [Not Recovered/Not Resolved]

NARRATIVE: CASE EVENT DATE: 20160316
